FAERS Safety Report 5031711-5 (Version None)
Quarter: 2006Q2

REPORT INFORMATION
  Report Type: 
  Country: None (occurrence: None)
  Receive Date: 20060616
  Receipt Date: 20060601
  Transmission Date: 20061013
  Serious: Yes (Death, Hospitalization)
  Sender: FDA-Public Use
  Company Number: US200512002347

PATIENT
  Age: 40 Year
  Sex: Male
  Weight: 99.8 kg

DRUGS (1)
  1. ZYPREXA [Suspect]
     Dosage: ORAL
     Route: 048

REACTIONS (4)
  - ACUTE MYOCARDIAL INFARCTION [None]
  - CHOLELITHIASIS [None]
  - HYPERGLYCAEMIA [None]
  - SUDDEN CARDIAC DEATH [None]
